FAERS Safety Report 22641368 (Version 4)
Quarter: 2024Q1

REPORT INFORMATION
  Report Type: Report from Study
  Country: CA (occurrence: CA)
  Receive Date: 20230626
  Receipt Date: 20240315
  Transmission Date: 20240409
  Serious: Yes (Other)
  Sender: FDA-Public Use
  Company Number: CA-CHIESI-2023CHF03187

PATIENT
  Age: 9 Year
  Sex: Female
  Weight: 28.7 kg

DRUGS (3)
  1. DEFERIPRONE [Suspect]
     Active Substance: DEFERIPRONE
     Indication: Thalassaemia
     Dosage: UNK UNK, TID
     Route: 048
     Dates: start: 20230326, end: 20230619
  2. DEFERIPRONE [Suspect]
     Active Substance: DEFERIPRONE
     Indication: Transfusion
     Dosage: UNK UNK, TID
     Route: 048
     Dates: start: 20240215
  3. DEFERIPRONE [Suspect]
     Active Substance: DEFERIPRONE
     Dosage: 1000 MILLIGRAM, TID
     Route: 048
     Dates: start: 20240308

REACTIONS (3)
  - Liver injury [Recovered/Resolved]
  - Prescribed overdose [Not Recovered/Not Resolved]
  - Off label use [Not Recovered/Not Resolved]

NARRATIVE: CASE EVENT DATE: 20230619
